FAERS Safety Report 17183502 (Version 1)
Quarter: 2019Q4

REPORT INFORMATION
  Report Type: Spontaneous
  Country: SE (occurrence: SE)
  Receive Date: 20191220
  Receipt Date: 20191220
  Transmission Date: 20200122
  Serious: Yes (Hospitalization)
  Sender: FDA-Public Use
  Company Number: SE-TEVA-2019-SE-1153769

PATIENT
  Age: 55 Year
  Sex: Female

DRUGS (3)
  1. STESOLID [Suspect]
     Active Substance: DIAZEPAM
     Dosage: UNCLEAR AMOUNT
     Route: 048
     Dates: start: 20181129, end: 20181129
  2. THERALEN [Suspect]
     Active Substance: TRIMEPRAZINE
     Dosage: 50 ML
     Dates: start: 20181129, end: 20181129
  3. PROPAVAN [Suspect]
     Active Substance: PROPIOMAZINE
     Dosage: UNCLEAR AMOUNT
     Route: 048
     Dates: start: 20181129, end: 20181129

REACTIONS (3)
  - Depressed level of consciousness [Unknown]
  - Intentional overdose [Unknown]
  - Intentional self-injury [Unknown]

NARRATIVE: CASE EVENT DATE: 20181129
